FAERS Safety Report 6257346-4 (Version None)
Quarter: 2009Q3

REPORT INFORMATION
  Report Type: 
  Country: None (occurrence: None)
  Receive Date: 20090706
  Receipt Date: 20090626
  Transmission Date: 20100115
  Serious: Yes (Other)
  Sender: FDA-Public Use
  Company Number: PHHO2009JP08115

PATIENT
  Sex: Male

DRUGS (2)
  1. RAD 666 RAD+TAB+PTR [Suspect]
     Indication: RENAL TRANSPLANT
     Dosage: UNK
     Route: 048
     Dates: start: 20090619
  2. RAD 666 RAD+TAB+PTR [Suspect]
     Dosage: 0.5 MG
     Route: 048

REACTIONS (1)
  - URINE OUTPUT DECREASED [None]
